FAERS Safety Report 8259658-1 (Version None)
Quarter: 2012Q2

REPORT INFORMATION
  Report Type: 
  Country: None (occurrence: None)
  Receive Date: 20120404
  Receipt Date: 20120326
  Transmission Date: 20120825
  Serious: Yes (Other)
  Sender: FDA-Public Use
  Company Number: US-ASTRAZENECA-2012SE20424

PATIENT
  Age: 47 Year
  Sex: Male

DRUGS (3)
  1. XANAX [Concomitant]
  2. SEROQUEL [Suspect]
     Indication: BIPOLAR DISORDER
     Dosage: 50 MG TID AND 200 MG HS (350 MG TOTAL DAILY DOSE)
     Route: 048
  3. SEROQUEL [Suspect]
     Indication: DEPRESSION
     Dosage: 50 MG TID AND 200 MG HS (350 MG TOTAL DAILY DOSE)
     Route: 048

REACTIONS (4)
  - AFFECTIVE DISORDER [None]
  - FOOT FRACTURE [None]
  - FEELING ABNORMAL [None]
  - DECREASED APPETITE [None]
